FAERS Safety Report 23070998 (Version 2)
Quarter: 2023Q4

REPORT INFORMATION
  Report Type: Report from Study
  Country: CA (occurrence: CA)
  Receive Date: 20231016
  Receipt Date: 20231117
  Transmission Date: 20240110
  Serious: Yes (Death, Hospitalization)
  Sender: FDA-Public Use
  Company Number: CA-ABBVIE-5448737

PATIENT
  Sex: Female
  Weight: 71 kg

DRUGS (2)
  1. VENCLEXTA [Suspect]
     Active Substance: VENETOCLAX
     Indication: Acute myeloid leukaemia
     Route: 048
     Dates: start: 20231003, end: 20231012
  2. AZACITIDINE [Concomitant]
     Active Substance: AZACITIDINE
     Indication: Acute myeloid leukaemia

REACTIONS (4)
  - Dyspnoea [Fatal]
  - Pneumonia [Unknown]
  - Off label use [Unknown]
  - Cytopenia [Unknown]

NARRATIVE: CASE EVENT DATE: 20230101
